APPROVED DRUG PRODUCT: IOPIDINE
Active Ingredient: APRACLONIDINE HYDROCHLORIDE
Strength: EQ 1% BASE
Dosage Form/Route: SOLUTION/DROPS;OPHTHALMIC
Application: N019779 | Product #001
Applicant: HARROW EYE LLC
Approved: Dec 31, 1987 | RLD: Yes | RS: Yes | Type: RX